FAERS Safety Report 8191396-6 (Version None)
Quarter: 2012Q1

REPORT INFORMATION
  Report Type: 
  Country: None (occurrence: None)
  Receive Date: 20120307
  Receipt Date: 20110512
  Transmission Date: 20120608
  Serious: No
  Sender: FDA-Public Use
  Company Number: US-ASTRAZENECA-2011SE28622

PATIENT
  Sex: Female

DRUGS (4)
  1. TOPAMAX [Concomitant]
  2. ZOMIG [Suspect]
     Indication: MIGRAINE
     Route: 048
     Dates: start: 20110423, end: 20110423
  3. LAMICTAL [Concomitant]
  4. PROZAC [Concomitant]

REACTIONS (8)
  - PAIN [None]
  - LIP SWELLING [None]
  - HYPERAESTHESIA [None]
  - ABASIA [None]
  - BURNING SENSATION [None]
  - PHARYNGEAL OEDEMA [None]
  - OEDEMA PERIPHERAL [None]
  - ADVERSE DRUG REACTION [None]
